FAERS Safety Report 17277850 (Version 5)
Quarter: 2020Q1

REPORT INFORMATION
  Report Type: Report from Study
  Country: CA (occurrence: CA)
  Receive Date: 20200116
  Receipt Date: 20200313
  Transmission Date: 20200409
  Serious: Yes (Hospitalization, Other)
  Sender: FDA-Public Use
  Company Number: PHHY2019CA181510

PATIENT
  Age: 57 Year
  Sex: Male

DRUGS (5)
  1. SANDOSTATIN LAR DEPOT [Interacting]
     Active Substance: OCTREOTIDE ACETATE
     Dosage: 60 MG, QMO (Q4W)
     Route: 030
     Dates: start: 20190729
  2. SANDOSTATIN LAR DEPOT [Interacting]
     Active Substance: OCTREOTIDE ACETATE
     Dosage: 30 MG, QMO
     Route: 030
  3. SANDOSTATIN LAR DEPOT [Interacting]
     Active Substance: OCTREOTIDE ACETATE
     Dosage: 60 MG, QMO (Q4W)
     Route: 030
     Dates: start: 20191121
  4. OCTREOTIDE. [Concomitant]
     Active Substance: OCTREOTIDE
     Indication: PRODUCT USED FOR UNKNOWN INDICATION
     Dosage: 200 UG, TID
     Route: 058
     Dates: start: 20190429
  5. SANDOSTATIN LAR DEPOT [Suspect]
     Active Substance: OCTREOTIDE ACETATE
     Indication: VIPOMA
     Dosage: 30 MG, QMO (Q4W)
     Route: 030

REACTIONS (9)
  - Blood pressure increased [Unknown]
  - Fatigue [Unknown]
  - Blood pressure systolic increased [Unknown]
  - Diarrhoea [Recovered/Resolved]
  - Rash [Unknown]
  - Pollakiuria [Unknown]
  - Injection site pain [Recovered/Resolved]
  - Asthenia [Unknown]
  - Blood potassium decreased [Unknown]

NARRATIVE: CASE EVENT DATE: 2019
